FAERS Safety Report 21883055 (Version 1)
Quarter: 2023Q1

REPORT INFORMATION
  Report Type: Report from Study
  Country: US (occurrence: US)
  Receive Date: 20230119
  Receipt Date: 20230119
  Transmission Date: 20230418
  Serious: No
  Sender: FDA-Public Use
  Company Number: US-ABBVIE-4271134

PATIENT
  Sex: Female

DRUGS (1)
  1. HUMIRA [Suspect]
     Active Substance: ADALIMUMAB
     Indication: Retinal pigment epitheliopathy
     Route: 058
     Dates: start: 20230105

REACTIONS (3)
  - Off label use [Unknown]
  - Injury associated with device [Recovering/Resolving]
  - Wrong technique in product usage process [Not Recovered/Not Resolved]
